FAERS Safety Report 8886911 (Version 1)
Quarter: 2012Q4

REPORT INFORMATION
  Report Type: 
  Country: US (occurrence: US)
  Receive Date: 20121105
  Receipt Date: 20121105
  Transmission Date: 20130627
  Serious: Yes (Hospitalization)
  Sender: FDA-Public Use
  Company Number: US-ALEXION-A201200773

PATIENT
  Age: 2 Year
  Sex: Male
  Weight: 8.64 kg

DRUGS (11)
  1. SOLIRIS 300MG [Suspect]
     Indication: HAEMOLYTIC URAEMIC SYNDROME
     Dosage: 300 mg, UNK
     Route: 042
     Dates: start: 201202
  2. SOLIRIS 300MG [Suspect]
     Dosage: 300 mg, q2w
     Route: 042
     Dates: start: 20120404
  3. POTASSIUM [Suspect]
     Indication: MINERAL SUPPLEMENTATION
     Dosage: 15 ml BID, (40 mEq/14 mL oral liquid, 900 mL)
     Route: 048
  4. LASIX [Suspect]
     Indication: CARDIAC FAILURE CONGESTIVE
     Dosage: Decreased
  5. LASIX [Suspect]
     Dosage: 2 ml TID, (10 mg/ml [liquid])
     Route: 048
     Dates: start: 201202
  6. CLONIDINE [Suspect]
     Indication: PRODUCT USED FOR UNKNOWN INDICATION
     Dosage: 0.3mg/24 hr (1 patch) transdermal film, extended, Q1Wk
     Route: 061
  7. TYLENOL INFANTS [Concomitant]
     Indication: PRODUCT USED FOR UNKNOWN INDICATION
     Dosage: 160 mg (1.6 mL), qid
     Route: 048
  8. AMLODIPINE [Concomitant]
     Indication: PRODUCT USED FOR UNKNOWN INDICATION
     Dosage: (1 mg/ml) 5 ml, bid
     Route: 048
  9. METOLAZONE [Concomitant]
     Indication: PRODUCT USED FOR UNKNOWN INDICATION
     Dosage: 5 mg oral tablet, UNK
     Route: 048
  10. PENICILLIN V POTASSIUM [Concomitant]
     Indication: PRODUCT USED FOR UNKNOWN INDICATION
     Dosage: 5 mg, bid daily (250 mg oral table: See Instructions)
     Route: 048
  11. THIAZIDES, PLAIN [Concomitant]
     Indication: PRODUCT USED FOR UNKNOWN INDICATION
     Dosage: UNK
     Route: 065

REACTIONS (10)
  - Blood urea increased [Recovered/Resolved]
  - Viral upper respiratory tract infection [Recovered/Resolved]
  - Dehydration [Unknown]
  - Natural killer cell count decreased [Unknown]
  - Hypertension [Not Recovered/Not Resolved]
  - Thrombocytopenia [Unknown]
  - Abdominal pain [Unknown]
  - Eye swelling [Recovered/Resolved]
  - Blood potassium abnormal [Unknown]
  - Heart rate increased [Recovered/Resolved]
